FAERS Safety Report 13126919 (Version 1)
Quarter: 2017Q1

REPORT INFORMATION
  Report Type: Spontaneous
  Country: US (occurrence: US)
  Receive Date: 20170118
  Receipt Date: 20170118
  Transmission Date: 20170428
  Serious: Yes (Other)
  Sender: FDA-Public Use
  Company Number: US-ROCHE-1798625

PATIENT
  Sex: Female

DRUGS (6)
  1. DOXORUBICIN [Concomitant]
     Active Substance: DOXORUBICIN
  2. IDELALISIB [Concomitant]
     Active Substance: IDELALISIB
  3. RITUXAN [Suspect]
     Active Substance: RITUXIMAB
     Indication: DIFFUSE LARGE B-CELL LYMPHOMA
     Route: 065
  4. PREDNISONE. [Concomitant]
     Active Substance: PREDNISONE
  5. CYCLOPHOSPHAMIDE. [Concomitant]
     Active Substance: CYCLOPHOSPHAMIDE
  6. VINCRISTINE [Concomitant]
     Active Substance: VINCRISTINE

REACTIONS (2)
  - B-cell lymphoma recurrent [Unknown]
  - Cytopenia [Unknown]
